FAERS Safety Report 19239091 (Version 1)
Quarter: 2021Q2

REPORT INFORMATION
  Report Type: Spontaneous
  Country: US (occurrence: US)
  Receive Date: 20210510
  Receipt Date: 20210510
  Transmission Date: 20210717
  Serious: No
  Sender: FDA-Public Use
  Company Number: US-JNJFOC-20210501083

PATIENT
  Sex: Female

DRUGS (2)
  1. TOPAMAX [Suspect]
     Active Substance: TOPIRAMATE
     Route: 048
  2. TOPAMAX [Suspect]
     Active Substance: TOPIRAMATE
     Indication: POST-TRAUMATIC STRESS DISORDER
     Route: 048

REACTIONS (6)
  - Dizziness [Unknown]
  - Confusional state [Unknown]
  - Product use in unapproved indication [Unknown]
  - Off label use [Unknown]
  - Coordination abnormal [Unknown]
  - Dysarthria [Unknown]
